FAERS Safety Report 5270211-4 (Version None)
Quarter: 2007Q1

REPORT INFORMATION
  Report Type: 
  Country: None (occurrence: None)
  Receive Date: 20070320
  Receipt Date: 20070305
  Transmission Date: 20070707
  Serious: Yes (Other)
  Sender: FDA-Public Use
  Company Number: US-SHR-US-2006-026212

PATIENT
  Age: 57 Year
  Sex: Female

DRUGS (12)
  1. BETASERON [Suspect]
     Dosage: 6 MIU, EVERY 3D
     Route: 058
     Dates: start: 20061117, end: 20061203
  2. BETASERON [Suspect]
     Dosage: 8 MIU, EVERY 2D
     Route: 058
     Dates: start: 20060719
  3. BETASERON [Suspect]
     Dosage: 6 MIU, EVERY 3D
     Route: 058
     Dates: start: 20060719, end: 20060101
  4. BETASERON [Suspect]
     Dosage: 4 MIU, EVERY 2D
     Route: 058
     Dates: start: 20060911, end: 20060912
  5. BETASERON [Suspect]
     Dosage: 4 MIU, EVERY 3D
     Route: 058
     Dates: start: 20061117, end: 20061203
  6. BACLOFEN [Suspect]
     Dates: end: 20061001
  7. NORVASC [Concomitant]
  8. PRILOSEC [Concomitant]
  9. ALLERGY SHOT [Concomitant]
     Indication: SEASONAL ALLERGY
  10. PROZAC [Concomitant]
  11. VALIUM [Concomitant]
  12. COPAXONE [Concomitant]
     Dates: start: 20070110

REACTIONS (13)
  - BALANCE DISORDER [None]
  - COORDINATION ABNORMAL [None]
  - DIZZINESS [None]
  - GAIT DISTURBANCE [None]
  - HYPOACUSIS [None]
  - MENIERE'S DISEASE [None]
  - MULTIPLE SCLEROSIS [None]
  - NAUSEA [None]
  - NYSTAGMUS [None]
  - OSTEOPENIA [None]
  - THYROID NEOPLASM [None]
  - TINNITUS [None]
  - VOMITING [None]
